FAERS Safety Report 5316619-X (Version None)
Quarter: 2007Q2

REPORT INFORMATION
  Report Type: 
  Country: None (occurrence: None)
  Receive Date: 20070504
  Receipt Date: 20070425
  Transmission Date: 20071010
  Serious: Yes (Hospitalization, Other)
  Sender: FDA-Public Use
  Company Number: US-JNJFOC-20070204355

PATIENT
  Sex: Male
  Weight: 134.72 kg

DRUGS (12)
  1. REMICADE [Suspect]
     Route: 042
  2. REMICADE [Suspect]
     Indication: RHEUMATOID ARTHRITIS
     Route: 042
  3. LOVENOX [Concomitant]
  4. COUMADIN [Concomitant]
  5. VERPAMIL [Concomitant]
  6. BISOPROLOL FUMARATE AND HYDROCHLOROTHIAZIDE [Concomitant]
  7. ZOCOR [Concomitant]
     Dosage: 40 MG AT HS
  8. ANDROGEL [Concomitant]
     Indication: BLOOD TESTOSTERONE DECREASED
  9. PREDNISONE [Concomitant]
     Indication: RHEUMATOID ARTHRITIS
  10. FOLIC ACID [Concomitant]
  11. VIAGRA [Concomitant]
     Dosage: 100
  12. ZIAC [Concomitant]
     Dosage: 10/6.2 BID

REACTIONS (3)
  - ATRIAL FIBRILLATION [None]
  - INTRACARDIAC THROMBUS [None]
  - TRANSIENT ISCHAEMIC ATTACK [None]
